FAERS Safety Report 8450435-5 (Version None)
Quarter: 2012Q2

REPORT INFORMATION
  Report Type: 
  Country: None (occurrence: None)
  Receive Date: 20120620
  Receipt Date: 20120612
  Transmission Date: 20120825
  Serious: Yes (Other)
  Sender: FDA-Public Use
  Company Number: JP-ASTELLAS-2012JP005016

PATIENT
  Age: 48 Year
  Sex: Female

DRUGS (7)
  1. JANUVIA [Concomitant]
     Dosage: 50 MG, UNKNOWN/D
     Route: 048
     Dates: start: 20120330
  2. LANSOPRAZOLE [Concomitant]
     Dosage: 15 MG, UNKNOWN/D
     Route: 048
     Dates: start: 20110501
  3. PANDEL [Concomitant]
     Dosage: UNK
     Route: 061
     Dates: start: 20110501
  4. PROGRAF [Suspect]
     Indication: DERMATOMYOSITIS
     Dosage: 1 MG, UNKNOWN/D
     Route: 048
     Dates: start: 20120426, end: 20120517
  5. ALENDRONATE SODIUM [Concomitant]
     Dosage: 35 MG, UNKNOWN/D
     Route: 048
     Dates: start: 20110501
  6. PREDNISOLONE [Concomitant]
     Dosage: 20 MG, QOD
     Route: 048
     Dates: start: 20110501
  7. RESTAMIN [Concomitant]
     Dosage: 40 G, Q2W
     Route: 061
     Dates: start: 20110501

REACTIONS (3)
  - WHITE BLOOD CELL COUNT INCREASED [None]
  - PLATELET COUNT INCREASED [None]
  - OFF LABEL USE [None]
